FAERS Safety Report 5352419-2 (Version None)
Quarter: 2007Q2

REPORT INFORMATION
  Report Type: 
  Country: None (occurrence: None)
  Receive Date: 20070607
  Receipt Date: 20070607
  Transmission Date: 20071010
  Serious: Yes (Other)
  Sender: FDA-Public Use
  Company Number: None

PATIENT
  Sex: Male
  Weight: 118 kg

DRUGS (1)
  1. VECURONIUM 10MG VIAL BEDFORD [Suspect]
     Indication: INTUBATION
     Dosage: 10MG ONCE IV  2-3MG Q15MIN IV
     Route: 042
     Dates: start: 20070605, end: 20070605

REACTIONS (4)
  - MUSCLE TWITCHING [None]
  - PHARMACEUTICAL PRODUCT COMPLAINT [None]
  - POOR QUALITY DRUG ADMINISTERED [None]
  - PROCEDURAL COMPLICATION [None]
